FAERS Safety Report 22340801 (Version 1)
Quarter: 2023Q2

REPORT INFORMATION
  Report Type: Spontaneous
  Country: CN (occurrence: CN)
  Receive Date: 20230518
  Receipt Date: 20230518
  Transmission Date: 20230722
  Serious: Yes (Other)
  Sender: FDA-Public Use
  Company Number: CN-Eisai Medical Research-EC-2023-140284

PATIENT
  Age: 26 Year
  Sex: Female

DRUGS (4)
  1. RABEPRAZOLE [Suspect]
     Active Substance: RABEPRAZOLE
     Indication: Helicobacter infection
     Dosage: 20 MG DAILY
     Route: 048
     Dates: start: 20230308, end: 20230314
  2. FURAZOLIDONE [Suspect]
     Active Substance: FURAZOLIDONE
     Indication: Helicobacter infection
     Dosage: 200 MG DAILY
     Route: 048
     Dates: start: 20230308, end: 20230321
  3. BISMUTH SUBCITRATE [Suspect]
     Active Substance: BISMUTH SUBCITRATE
     Indication: Helicobacter infection
     Dosage: 480 MG DAILY
     Route: 048
     Dates: start: 20230308, end: 20230321
  4. AMOXICILLIN [Suspect]
     Active Substance: AMOXICILLIN
     Indication: Helicobacter infection
     Dosage: 2 G DAILY
     Route: 048
     Dates: start: 20230308, end: 20230322

REACTIONS (2)
  - Dermatitis allergic [Unknown]
  - Drug eruption [Unknown]

NARRATIVE: CASE EVENT DATE: 20230322
